FAERS Safety Report 4704601-2 (Version None)
Quarter: 2005Q2

REPORT INFORMATION
  Report Type: 
  Country: None (occurrence: None)
  Receive Date: 20050629
  Receipt Date: 20050620
  Transmission Date: 20051028
  Serious: Yes (Other)
  Sender: FDA-Public Use
  Company Number: 2005090727

PATIENT
  Age: 65 Year
  Sex: Male

DRUGS (3)
  1. DOXAZOSIN (DOXAZOSIN) [Suspect]
     Indication: BENIGN PROSTATIC HYPERPLASIA
     Dosage: 4 MG (4 MG, DAILY), ORAL
     Route: 048
  2. ANTIHYPERTENSIVES (ANTIHYPERTENSIVES) [Concomitant]
  3. CHOLESTEROL- AND TRIGLYCERIDE REDUCERS (CHOLESTEROL AND TRIGLYCERIDE R [Concomitant]

REACTIONS (6)
  - COLD SWEAT [None]
  - MALAISE [None]
  - NAUSEA [None]
  - TREMOR [None]
  - VISION BLURRED [None]
  - VOMITING [None]
